FAERS Safety Report 13888063 (Version 1)
Quarter: 2017Q3

REPORT INFORMATION
  Report Type: Spontaneous
  Country: PT (occurrence: PT)
  Receive Date: 20170821
  Receipt Date: 20170821
  Transmission Date: 20171127
  Serious: Yes (Other)
  Sender: FDA-Public Use
  Company Number: PT-PFIZER INC-2017355739

PATIENT
  Age: 53 Year
  Sex: Female

DRUGS (4)
  1. CYTARABINE. [Suspect]
     Active Substance: CYTARABINE
     Dosage: 3000 MG/M2, DAYS 1,3 AND 5
     Route: 042
  2. IDARUBICIN HCL [Suspect]
     Active Substance: IDARUBICIN HYDROCHLORIDE
     Indication: CHLOROMA
     Dosage: 12 MG/M2, (DAYS 1,2,3)
     Route: 042
  3. CYTARABINE. [Suspect]
     Active Substance: CYTARABINE
     Indication: CHLOROMA
     Dosage: 200 MG/M2, DAILY, PERFUSION OF 24H, DAYS 1,2,3,4,5,6,7
     Route: 042
  4. ONDANSETRON HCL [Suspect]
     Active Substance: ONDANSETRON HYDROCHLORIDE
     Indication: CHLOROMA
     Dosage: 8 MG, 3X/DAY (8/8H)

REACTIONS (1)
  - Neutropenic colitis [Recovered/Resolved]
